FAERS Safety Report 19127376 (Version 1)
Quarter: 2021Q2

REPORT INFORMATION
  Report Type: Spontaneous
  Country: US (occurrence: US)
  Receive Date: 20210413
  Receipt Date: 20210413
  Transmission Date: 20210717
  Serious: No
  Sender: FDA-Public Use
  Company Number: US-ALLERGAN-2018720US

PATIENT
  Age: 53 Year
  Sex: Female

DRUGS (2)
  1. LATISSE [Suspect]
     Active Substance: BIMATOPROST
     Indication: GROWTH OF EYELASHES
     Dosage: 1 OR 2 GTT AT NIGHT OR MORNING
     Route: 061
     Dates: start: 202004
  2. LATISSE [Suspect]
     Active Substance: BIMATOPROST
     Dosage: UNK

REACTIONS (5)
  - Ocular hyperaemia [Recovered/Resolved]
  - Inappropriate schedule of product administration [Unknown]
  - Drug ineffective [Unknown]
  - Incorrect dose administered [Unknown]
  - Eye pruritus [Recovered/Resolved]
